FAERS Safety Report 15286010 (Version 1)
Quarter: 2018Q3

REPORT INFORMATION
  Report Type: Spontaneous
  Country: US (occurrence: US)
  Receive Date: 20180802
  Receipt Date: 20180802
  Transmission Date: 20181010
  Serious: No
  Sender: FDA-Public Use
  Company Number: None

PATIENT
  Age: 31 Year
  Sex: Female
  Weight: 48.6 kg

DRUGS (4)
  1. PANTAPROZOLE [Suspect]
     Active Substance: PANTOPRAZOLE SODIUM
     Indication: GASTROOESOPHAGEAL REFLUX DISEASE
     Dosage: ?          QUANTITY:1 TABLET(S);?
     Route: 048
     Dates: start: 20180801, end: 20180802
  2. PRENATAL VITAMIN [Concomitant]
     Active Substance: VITAMINS
  3. PANTAPROZOLE [Suspect]
     Active Substance: PANTOPRAZOLE SODIUM
     Indication: PREGNANCY
     Dosage: ?          QUANTITY:1 TABLET(S);?
     Route: 048
     Dates: start: 20180801, end: 20180802
  4. VITAMIN B6 [Concomitant]
     Active Substance: PYRIDOXINE HYDROCHLORIDE

REACTIONS (9)
  - Hallucination [None]
  - Vomiting [None]
  - Abdominal pain [None]
  - Nausea [None]
  - Maternal drugs affecting foetus [None]
  - Nightmare [None]
  - Paranoia [None]
  - Maternal exposure timing unspecified [None]
  - Sleep disorder [None]

NARRATIVE: CASE EVENT DATE: 20180801
